FAERS Safety Report 10640473 (Version 1)
Quarter: 2014Q4

REPORT INFORMATION
  Report Type: Spontaneous
  Country: US (occurrence: US)
  Receive Date: 20141209
  Receipt Date: 20141209
  Transmission Date: 20150529
  Serious: No
  Sender: FDA-Public Use
  Company Number: US-TEVA-508333USA

PATIENT
  Age: 23 Year
  Sex: Male
  Weight: 108.96 kg

DRUGS (2)
  1. CLOZAPINE. [Suspect]
     Active Substance: CLOZAPINE
     Indication: PRODUCT USED FOR UNKNOWN INDICATION
     Route: 048
  2. LAMOTRIGINE. [Concomitant]
     Active Substance: LAMOTRIGINE

REACTIONS (1)
  - Neutrophil count decreased [Unknown]
